FAERS Safety Report 8287581-5 (Version None)
Quarter: 2012Q2

REPORT INFORMATION
  Report Type: 
  Country: None (occurrence: None)
  Receive Date: 20120416
  Receipt Date: 20120404
  Transmission Date: 20120825
  Serious: Yes (Hospitalization)
  Sender: FDA-Public Use
  Company Number: CA-CELGENEUS-028-C5013-11032838

PATIENT
  Age: 71 Year
  Sex: Male
  Weight: 56.2 kg

DRUGS (42)
  1. CC-5013 [Suspect]
     Indication: MULTIPLE MYELOMA
     Dosage: 25 MILLIGRAM
     Route: 048
     Dates: start: 20091110
  2. DEXAMETHASONE [Suspect]
     Dosage: 12 MILLIGRAM
     Route: 065
     Dates: start: 20110120, end: 20110317
  3. METOPROLOL [Concomitant]
     Dosage: 50 MILLIGRAM
     Route: 048
     Dates: start: 20100519
  4. LASIX [Concomitant]
     Dosage: 20 MILLIGRAM
     Route: 048
     Dates: start: 20110301, end: 20110323
  5. ALDACTONE [Concomitant]
     Indication: PROPHYLAXIS
     Dosage: 12.5 MILLIGRAM
     Route: 048
     Dates: start: 20110323, end: 20110405
  6. PREDNISONE TAB [Concomitant]
     Dosage: 15 MILLIGRAM
     Route: 048
     Dates: start: 20100204, end: 20100205
  7. METOPROLOL [Concomitant]
     Indication: PROPHYLAXIS
     Dosage: 12.5 MILLIGRAM
     Route: 048
     Dates: start: 20100101, end: 20100120
  8. LASIX [Concomitant]
     Dosage: 40 MILLIGRAM
     Route: 048
     Dates: start: 20110301
  9. LIPITOR [Concomitant]
     Dosage: 80 MILLIGRAM
     Route: 048
     Dates: start: 20050101
  10. PREDNISONE TAB [Concomitant]
     Indication: SWELLING
     Dosage: 20 MILLIGRAM
     Route: 048
     Dates: start: 20100201, end: 20100203
  11. SYNTHROID [Concomitant]
     Indication: HYPOTHYROIDISM
     Dosage: .15 MILLIGRAM
     Route: 048
     Dates: start: 20050101
  12. NITROGLYCERIN [Concomitant]
     Dosage: .4 MILLIGRAM
     Route: 048
     Dates: start: 20100101
  13. RAMIPRIL [Concomitant]
     Dosage: 1.25 MILLIGRAM
     Route: 048
     Dates: start: 20100101, end: 20100211
  14. LASIX [Concomitant]
     Dosage: 20 MILLIGRAM
     Route: 048
     Dates: start: 20110211, end: 20110301
  15. CC-5013 [Suspect]
     Dosage: 25 MILLIGRAM
     Route: 048
     Dates: start: 20110224, end: 20110324
  16. CC-5013 [Suspect]
     Dosage: 25 MILLIGRAM
     Route: 048
     Dates: end: 20110512
  17. DEXAMETHASONE [Suspect]
     Indication: MULTIPLE MYELOMA
     Dosage: 40 MILLIGRAM
     Route: 065
     Dates: start: 20091110
  18. DEXAMETHASONE [Suspect]
     Dosage: 12 MILLIGRAM
     Route: 065
     Dates: start: 20110331
  19. ASPIRIN [Concomitant]
     Indication: THROMBOSIS
     Dosage: 81 MILLIGRAM
     Route: 048
     Dates: start: 19930101
  20. ASPIRIN [Concomitant]
     Indication: CORONARY ARTERY DISEASE
  21. COVERSYL PLUS [Concomitant]
     Indication: HYPERTENSION
     Dosage: 4/1.25MG
     Route: 048
     Dates: start: 20090401, end: 20091221
  22. APONADOLOL [Concomitant]
     Indication: CORONARY ARTERY DISEASE
  23. OMEPRAZOLE [Concomitant]
     Dosage: 20 MILLIGRAM
     Route: 048
     Dates: start: 19990101
  24. IMOVANE [Concomitant]
     Indication: INSOMNIA
     Dosage: 7.5 MILLIGRAM
     Route: 048
     Dates: start: 20100107
  25. SENOKOT [Concomitant]
     Indication: CONSTIPATION
     Dosage: 17.2 MILLIGRAM
     Route: 048
     Dates: start: 20100109
  26. RAMIPRIL [Concomitant]
     Dosage: 5 MILLIGRAM
     Route: 048
     Dates: start: 20110211
  27. LASIX [Concomitant]
     Dosage: 20 MILLIGRAM
     Route: 048
     Dates: start: 20110303, end: 20110304
  28. LASIX [Concomitant]
     Dosage: 20 MILLIGRAM
     Route: 048
     Dates: start: 20110313
  29. ASPIRIN [Concomitant]
     Indication: PROPHYLAXIS
  30. APONADOLOL [Concomitant]
     Indication: ANGINA PECTORIS
     Dosage: 40 MILLIGRAM
     Route: 048
     Dates: start: 19930101, end: 20100121
  31. NITROGLYCERIN [Concomitant]
     Dosage: .2 MILLIGRAM
     Route: 065
     Dates: start: 20100101, end: 20101001
  32. PAMIDRONATE DISODIUM [Concomitant]
     Indication: PROPHYLAXIS
     Dosage: 90 MILLIGRAM
     Route: 041
     Dates: start: 20110331
  33. APONADOLOL [Concomitant]
     Indication: PROPHYLAXIS
  34. PREDNISONE TAB [Concomitant]
     Dosage: 5 MILLIGRAM
     Route: 048
     Dates: start: 20100210, end: 20100211
  35. GLYBURIDE [Concomitant]
     Dosage: 80 MILLIGRAM
     Route: 048
     Dates: start: 20100101, end: 20100211
  36. GLYBURIDE [Concomitant]
     Dosage: 80 MILLIGRAM
     Route: 048
     Dates: start: 20100522
  37. ALDACTONE [Concomitant]
     Dosage: 25 MILLIGRAM
     Route: 048
     Dates: start: 20110211, end: 20110323
  38. COLACE [Concomitant]
     Indication: CONSTIPATION
     Dosage: 100 MILLIGRAM
     Route: 048
     Dates: start: 20100107
  39. PREDNISONE TAB [Concomitant]
     Dosage: 10 MILLIGRAM
     Route: 048
     Dates: start: 20100207, end: 20100209
  40. METOPROLOL [Concomitant]
     Dosage: 25 MILLIGRAM
     Route: 048
     Dates: start: 20100121, end: 20100519
  41. WARFARIN SODIUM [Concomitant]
     Indication: THROMBOSIS PROPHYLAXIS
     Dosage: 2 MILLIGRAM
     Route: 048
     Dates: start: 20100110, end: 20110121
  42. AMIODARONE HCL [Concomitant]
     Dosage: 200 MILLIGRAM
     Route: 048
     Dates: start: 20101001, end: 20101103

REACTIONS (2)
  - CONGESTIVE CARDIOMYOPATHY [None]
  - BACK PAIN [None]
